FAERS Safety Report 6644291-5 (Version None)
Quarter: 2010Q1

REPORT INFORMATION
  Report Type: 
  Country: None (occurrence: None)
  Receive Date: 20100304
  Receipt Date: 20090102
  Transmission Date: 20100710
  Serious: Yes (Life-Threatening, Hospitalization)
  Sender: FDA-Public Use
  Company Number: US-002329

PATIENT
  Age: 30 Year
  Sex: Male

DRUGS (4)
  1. ISOVUE-300 [Suspect]
     Indication: CHEST PAIN
     Dosage: 100ML INTRAVENOUS (NOT OTHERWISE SPECIFIED)
     Route: 042
     Dates: start: 20090101, end: 20090101
  2. ISOVUE-300 [Suspect]
     Indication: COMPUTERISED TOMOGRAM THORAX
     Dosage: 100ML INTRAVENOUS (NOT OTHERWISE SPECIFIED)
     Route: 042
     Dates: start: 20090101, end: 20090101
  3. ISOVUE-300 [Suspect]
     Indication: SYNCOPE
     Dosage: 100ML INTRAVENOUS (NOT OTHERWISE SPECIFIED)
     Route: 042
     Dates: start: 20090101, end: 20090101
  4. GLUCOPHAGE [Concomitant]

REACTIONS (2)
  - ANAPHYLACTOID REACTION [None]
  - CONVULSION [None]
